FAERS Safety Report 17042610 (Version 2)
Quarter: 2019Q4

REPORT INFORMATION
  Report Type: Spontaneous
  Country: ES (occurrence: ES)
  Receive Date: 20191118
  Receipt Date: 20191127
  Transmission Date: 20200122
  Serious: Yes (Other)
  Sender: FDA-Public Use
  Company Number: ES-CIRCASSIA PHARMACEUTICALS INC.-2019ES011310

PATIENT
  Age: 65 Year
  Sex: Female

DRUGS (3)
  1. MONTELUKAST [Suspect]
     Active Substance: MONTELUKAST SODIUM
     Indication: ASTHMA
     Dosage: UNK
     Route: 065
  2. BECLOMETASONE;FORMOTEROL [Suspect]
     Active Substance: BECLOMETHASONE\FORMOTEROL
     Indication: ASTHMA
     Dosage: 200/6 EVERY 8 H
     Route: 065
  3. ACLIDINIUM BROMIDE. [Suspect]
     Active Substance: ACLIDINIUM BROMIDE
     Indication: ASTHMA
     Dosage: UNK
     Route: 055

REACTIONS (6)
  - Therapeutic product effect incomplete [Unknown]
  - Bacterial infection [Recovered/Resolved]
  - Drug ineffective [Unknown]
  - Blood pressure inadequately controlled [Unknown]
  - Cushing^s syndrome [Unknown]
  - Diabetes mellitus [Unknown]
